APPROVED DRUG PRODUCT: SOLU-MEDROL
Active Ingredient: METHYLPREDNISOLONE SODIUM SUCCINATE
Strength: EQ 2GM BASE/VIAL
Dosage Form/Route: INJECTABLE;INJECTION
Application: N011856 | Product #007 | TE Code: AP
Applicant: PHARMACIA AND UPJOHN CO
Approved: Feb 27, 1985 | RLD: Yes | RS: Yes | Type: RX